FAERS Safety Report 6418796-6 (Version None)
Quarter: 2009Q4

REPORT INFORMATION
  Report Type: 
  Country: None (occurrence: None)
  Receive Date: 20091026
  Receipt Date: 20091008
  Transmission Date: 20100525
  Serious: Yes (Death)
  Sender: FDA-Public Use
  Company Number: 2009MB000062

PATIENT
  Age: 49 Year
  Sex: Male
  Weight: 103.4201 kg

DRUGS (4)
  1. MOXATAG [Suspect]
     Indication: PHARYNGITIS STREPTOCOCCAL
     Dosage: 775 MG
     Dates: start: 20090813, end: 20090813
  2. KAPIDEX [Concomitant]
  3. NYQUIL [Concomitant]
  4. ALEVE [Concomitant]

REACTIONS (20)
  - ALPHA HAEMOLYTIC STREPTOCOCCAL INFECTION [None]
  - APNOEA [None]
  - BLOOD PRESSURE DECREASED [None]
  - CARDIOMEGALY [None]
  - EPIGLOTTITIS [None]
  - FIBROSIS [None]
  - HEPATOSPLENOMEGALY [None]
  - INFLUENZA [None]
  - LEFT VENTRICULAR HYPERTROPHY [None]
  - LIVEDO RETICULARIS [None]
  - MENINGEAL DISORDER [None]
  - MYOCARDITIS [None]
  - PAIN [None]
  - PULMONARY CONGESTION [None]
  - PULMONARY OEDEMA [None]
  - PULSE ABSENT [None]
  - RASH ERYTHEMATOUS [None]
  - TACHYCARDIA [None]
  - UNRESPONSIVE TO STIMULI [None]
  - VOMITING [None]
